FAERS Safety Report 24547132 (Version 1)
Quarter: 2024Q4

REPORT INFORMATION
  Report Type: Spontaneous
  Country: DE (occurrence: DE)
  Receive Date: 20241025
  Receipt Date: 20241025
  Transmission Date: 20250115
  Serious: Yes (Hospitalization)
  Sender: UCB
  Company Number: DE-UCBSA-2024053059

PATIENT
  Sex: Female

DRUGS (2)
  1. RYSTIGGO [Suspect]
     Active Substance: ROZANOLIXIZUMAB-NOLI
     Indication: Myasthenia gravis
     Dosage: UNK
     Dates: start: 2024
  2. RYSTIGGO [Suspect]
     Active Substance: ROZANOLIXIZUMAB-NOLI
     Dosage: UNK
     Dates: start: 202410

REACTIONS (4)
  - Chest discomfort [Unknown]
  - Asthenia [Unknown]
  - Myalgia [Unknown]
  - Palpitations [Unknown]

NARRATIVE: CASE EVENT DATE: 20241001
